FAERS Safety Report 5907423-X (Version None)
Quarter: 2008Q4

REPORT INFORMATION
  Report Type: 
  Country: None (occurrence: None)
  Receive Date: 20081003
  Receipt Date: 20080926
  Transmission Date: 20090506
  Serious: Yes (Hospitalization)
  Sender: FDA-Public Use
  Company Number: A0750135A

PATIENT
  Age: 37 Year
  Sex: Male
  Weight: 104.5 kg

DRUGS (10)
  1. AVANDIA [Suspect]
     Indication: DIABETES MELLITUS
     Dosage: 8MG TWICE PER DAY
     Route: 048
     Dates: start: 20000410, end: 20060701
  2. AVANDAMET [Suspect]
     Indication: DIABETES MELLITUS
     Route: 048
     Dates: start: 20030630, end: 20070719
  3. INSULIN [Concomitant]
  4. GLYBURIDE [Concomitant]
  5. GLUCOTROL [Concomitant]
  6. BYETTA [Concomitant]
  7. SEROQUEL [Concomitant]
  8. AMBIEN [Concomitant]
  9. TRICOR [Concomitant]
  10. LYRICA [Concomitant]

REACTIONS (2)
  - CARDIAC DISORDER [None]
  - MYOCARDIAL INFARCTION [None]
